FAERS Safety Report 21195626 (Version 2)
Quarter: 2022Q3

REPORT INFORMATION
  Report Type: Report from Study
  Country: US (occurrence: US)
  Receive Date: 20220810
  Receipt Date: 20220822
  Transmission Date: 20221026
  Serious: Yes (Hospitalization)
  Sender: FDA-Public Use
  Company Number: US-BRISTOL-MYERS SQUIBB COMPANY-2022-083814

PATIENT
  Age: 45 Year
  Sex: Male
  Weight: 71.50 kg

DRUGS (9)
  1. LENALIDOMIDE [Suspect]
     Active Substance: LENALIDOMIDE
     Indication: Diffuse large B-cell lymphoma
     Dosage: D 1-14
     Route: 042
     Dates: start: 20220328, end: 20220728
  2. VENETOCLAX [Suspect]
     Active Substance: VENETOCLAX
     Indication: Diffuse large B-cell lymphoma
     Dosage: D 2-14
     Route: 048
     Dates: start: 20220329, end: 20220728
  3. IBRUTINIB [Suspect]
     Active Substance: IBRUTINIB
     Indication: Diffuse large B-cell lymphoma
     Dosage: 560 MILLIGRAM D 1-14, Q3W, 140 MILLIGRAM
     Route: 048
     Dates: start: 20220328, end: 20220728
  4. PREDNISONE [Suspect]
     Active Substance: PREDNISONE
     Indication: Diffuse large B-cell lymphoma
     Dosage: D 1-7,
     Route: 048
     Dates: start: 20220328, end: 20220721
  5. POLATUZUMAB VEDOTIN [Suspect]
     Active Substance: POLATUZUMAB VEDOTIN
     Indication: Diffuse large B-cell lymphoma
     Dosage: D2, 140 MG
     Route: 042
     Dates: start: 20220329, end: 20220716
  6. OBINUTUZUMAB [Suspect]
     Active Substance: OBINUTUZUMAB
     Indication: Diffuse large B-cell lymphoma
     Dosage: D 1-2,25 MG/ML
     Route: 042
     Dates: start: 20220328, end: 20220716
  7. NEULASTA [Concomitant]
     Active Substance: PEGFILGRASTIM
     Indication: Product used for unknown indication
     Dosage: 6 MG NEULASTA (PEGFILGRASTIM), SUBCUTANEOUS (SQ) ON D8, Q3W
     Route: 058
     Dates: start: 20220404
  8. BACTRIM DS [Concomitant]
     Active Substance: SULFAMETHOXAZOLE\TRIMETHOPRIM
     Indication: Product used for unknown indication
     Dosage: 800MG/160 BACTRIM PO, MONDAY-WEDNESDAY-FRIDAY
     Route: 048
     Dates: start: 20220328
  9. ACYCLOVIR [Concomitant]
     Active Substance: ACYCLOVIR
     Indication: Product used for unknown indication
     Dosage: 400 MG ACYCLOVIR PO TWICE A DAY (BID)
     Route: 048
     Dates: start: 20220328

REACTIONS (1)
  - COVID-19 [Not Recovered/Not Resolved]

NARRATIVE: CASE EVENT DATE: 20220730
